FAERS Safety Report 9354812 (Version 1)
Quarter: 2013Q2

REPORT INFORMATION
  Report Type: Spontaneous
  Country: US (occurrence: None)
  Receive Date: 20130618
  Receipt Date: 20130618
  Transmission Date: 20140414
  Serious: Yes (Other)
  Sender: FDA-Public Use
  Company Number: None

PATIENT
  Age: 85 Year
  Sex: Female
  Weight: 80.74 kg

DRUGS (1)
  1. LEVOFLOXACIN [Suspect]
     Indication: KIDNEY INFECTION
     Route: 048
     Dates: start: 20130515, end: 20130517

REACTIONS (6)
  - Headache [None]
  - Dizziness [None]
  - Tunnel vision [None]
  - Arthralgia [None]
  - Hypoaesthesia [None]
  - Joint stiffness [None]
